FAERS Safety Report 9966803 (Version 2)
Quarter: 2014Q1

REPORT INFORMATION
  Report Type: Report from Study
  Country: US (occurrence: US)
  Receive Date: 20140305
  Receipt Date: 20140305
  Transmission Date: 20141002
  Serious: No
  Sender: FDA-Public Use
  Company Number: US-ABBVIE-13P-163-1063713-00

PATIENT
  Age: 47 Year
  Sex: Male

DRUGS (14)
  1. HUMIRA [Suspect]
     Indication: RHEUMATOID ARTHRITIS
     Dosage: FIRST DOSE ONLY
     Dates: start: 20130311
  2. METHOTREXATE [Concomitant]
     Indication: PRODUCT USED FOR UNKNOWN INDICATION
     Dosage: ON WEDNESDAYS
  3. LORTAB [Concomitant]
     Indication: PAIN
  4. COREG [Concomitant]
     Indication: BLOOD PRESSURE
  5. LISINOPRIL [Concomitant]
     Indication: BLOOD PRESSURE
  6. ASPIRIN [Concomitant]
     Indication: CARDIAC DISORDER
  7. NIASPAN [Concomitant]
     Indication: BLOOD CHOLESTEROL
  8. SIMVASTATIN [Concomitant]
     Indication: BLOOD CHOLESTEROL
  9. FOLIC ACID [Concomitant]
     Indication: VITAMIN SUPPLEMENTATION
  10. VITAMINS [Concomitant]
     Indication: VITAMIN SUPPLEMENTATION
  11. CARVEDILOL [Concomitant]
     Indication: PRODUCT USED FOR UNKNOWN INDICATION
  12. MULTIVITAMIN [Concomitant]
     Indication: PRODUCT USED FOR UNKNOWN INDICATION
  13. ZANTAC [Concomitant]
     Indication: PRODUCT USED FOR UNKNOWN INDICATION
     Dosage: 75-150MG
  14. VICOPROFEN [Concomitant]
     Indication: PRODUCT USED FOR UNKNOWN INDICATION
     Dosage: 5/200MG

REACTIONS (5)
  - Fatigue [Recovering/Resolving]
  - Dyspepsia [Recovering/Resolving]
  - Dyspepsia [Recovering/Resolving]
  - Diarrhoea [Recovering/Resolving]
  - Viral infection [Unknown]
